FAERS Safety Report 8509511-0 (Version None)
Quarter: 2012Q3

REPORT INFORMATION
  Report Type: 
  Country: None (occurrence: None)
  Receive Date: 20120713
  Receipt Date: 20120709
  Transmission Date: 20120928
  Serious: Yes (Other)
  Sender: FDA-Public Use
  Company Number: FR-PFIZER INC-2012065411

PATIENT
  Age: 56 Year
  Sex: Female

DRUGS (5)
  1. LYRICA [Suspect]
     Indication: BACK PAIN
     Dosage: 300 MG PER DAY
     Dates: start: 20110601
  2. OLMESARTAN [Concomitant]
     Indication: HYPERTENSION
     Dosage: 20 MG, 1X/DAY
     Route: 048
  3. EBASTINE [Concomitant]
  4. ZOCOR [Concomitant]
     Indication: HYPERCHOLESTEROLAEMIA
     Dosage: 20 MG, 1X/DAY
     Route: 048
  5. TRAMADOL HCL [Suspect]
     Indication: BACK PAIN
     Dosage: 200 MG PER DAY
     Dates: start: 20110601

REACTIONS (1)
  - SLEEP APNOEA SYNDROME [None]
